FAERS Safety Report 25968938 (Version 1)
Quarter: 2025Q4

REPORT INFORMATION
  Report Type: Spontaneous
  Country: US (occurrence: None)
  Receive Date: 20251028
  Receipt Date: 20251028
  Transmission Date: 20260118
  Serious: Yes (Hospitalization)
  Sender: FDA-CTU
  Company Number: None

PATIENT
  Age: 56 Year
  Sex: Female
  Weight: 66.7 kg

DRUGS (4)
  1. FLUOROURACIL [Suspect]
     Active Substance: FLUOROURACIL
     Dates: end: 20251006
  2. CAMPTOSAR [Suspect]
     Active Substance: IRINOTECAN HYDROCHLORIDE
     Dates: end: 20251004
  3. LEUCOVORIN CALCIUM [Suspect]
     Active Substance: LEUCOVORIN CALCIUM
     Dates: end: 20251004
  4. ELOXATIN [Suspect]
     Active Substance: OXALIPLATIN
     Dates: end: 20251003

REACTIONS (8)
  - Cholecystitis acute [None]
  - Treatment delayed [None]
  - Stent placement [None]
  - Nausea [None]
  - Biliary obstruction [None]
  - Refusal of treatment by patient [None]
  - Cholelithiasis [None]
  - Bile duct stent insertion [None]

NARRATIVE: CASE EVENT DATE: 20251023
